FAERS Safety Report 7063794 (Version 3)
Quarter: 2014Q1

REPORT INFORMATION
  Report Type: Spontaneous
  Country: US (occurrence: US)
  Receive Date: 20090727
  Receipt Date: 20140203
  Transmission Date: 20141002
  Serious: Yes (Hospitalization)
  Sender: FDA-Public Use
  Company Number: US-JNJFOC-20090502932

PATIENT
  Sex: Female

DRUGS (1)
  1. SANDOZ FENTANYL TRANSDERMAL SYSTEM [Suspect]
     Indication: PAIN
     Route: 062
     Dates: start: 200902, end: 20090515

REACTIONS (5)
  - Nausea [Recovered/Resolved]
  - Product quality issue [Unknown]
  - Device leakage [Unknown]
  - Wrong technique in drug usage process [Unknown]
  - Vomiting [Recovered/Resolved]
